FAERS Safety Report 7018788-2 (Version None)
Quarter: 2010Q3

REPORT INFORMATION
  Report Type: 
  Country: None (occurrence: None)
  Receive Date: 20100928
  Receipt Date: 20100916
  Transmission Date: 20110219
  Serious: Yes (Hospitalization, Other)
  Sender: FDA-Public Use
  Company Number: PHHY2010US55101

PATIENT
  Sex: Female
  Weight: 60 kg

DRUGS (19)
  1. EXJADE [Suspect]
     Indication: MYELODYSPLASTIC SYNDROME
     Dosage: 250 MG, DAILY
     Route: 048
     Dates: start: 20100623, end: 20100806
  2. EXJADE [Suspect]
     Indication: IRON OVERLOAD
     Dosage: 250 MG, DAILY
     Route: 048
     Dates: start: 20100819
  3. TYLENOL [Concomitant]
  4. LISINOPRIL [Concomitant]
  5. CITRACAL [Concomitant]
  6. MAGNESIUM [Concomitant]
  7. GLUCOSAMINE [Concomitant]
  8. CHONDROITIN [Concomitant]
  9. NEURONTIN [Concomitant]
  10. ASPIRIN [Concomitant]
  11. SYNTHROID [Concomitant]
     Indication: HYPOTHYROIDISM
     Dosage: 100 MG,DAILY
     Route: 048
  12. LIPITOR [Concomitant]
     Indication: BLOOD CHOLESTEROL INCREASED
     Dosage: 40 MG, UNK
     Route: 048
  13. ZINC [Concomitant]
  14. FOSAMAX [Concomitant]
  15. HUMALOG [Concomitant]
  16. BLOOD TRANSFUSION [Concomitant]
  17. CLARITIN [Concomitant]
     Indication: SEASONAL ALLERGY
     Dosage: 10 MG,DAILY
     Route: 048
  18. PRED FORTE [Concomitant]
     Indication: GLAUCOMA
     Dosage: UNK
  19. DECITABINE [Concomitant]
     Dosage: UNK

REACTIONS (9)
  - DIZZINESS [None]
  - FEBRILE NEUTROPENIA [None]
  - HAEMATOCRIT DECREASED [None]
  - HAEMOGLOBIN DECREASED [None]
  - HYPOTENSION [None]
  - NEUTROPHIL COUNT DECREASED [None]
  - PLATELET COUNT DECREASED [None]
  - SYNCOPE [None]
  - WHITE BLOOD CELL COUNT DECREASED [None]
